FAERS Safety Report 25924721 (Version 1)
Quarter: 2025Q4

REPORT INFORMATION
  Report Type: Spontaneous
  Country: GB (occurrence: GB)
  Receive Date: 20251015
  Receipt Date: 20251015
  Transmission Date: 20260118
  Serious: Yes (Other)
  Sender: TEVA
  Company Number: None

PATIENT
  Age: 71 Year
  Sex: Female
  Weight: 59 kg

DRUGS (1)
  1. BACLOFEN [Suspect]
     Active Substance: BACLOFEN
     Indication: Adverse drug reaction
     Route: 065
     Dates: start: 20251011, end: 20251011

REACTIONS (4)
  - Hallucination [Recovering/Resolving]
  - Confusional state [Recovered/Resolved]
  - Paranoia [Recovered/Resolved]
  - Conversion disorder [Recovered/Resolved]

NARRATIVE: CASE EVENT DATE: 20251011
